FAERS Safety Report 5800923-2 (Version None)
Quarter: 2008Q3

REPORT INFORMATION
  Report Type: 
  Country: None (occurrence: None)
  Receive Date: 20080702
  Receipt Date: 20080616
  Transmission Date: 20090109
  Serious: Yes (Hospitalization)
  Sender: FDA-Public Use
  Company Number: 2008AL006925

PATIENT
  Age: 67 Year
  Sex: Male
  Weight: 69.4003 kg

DRUGS (16)
  1. DIGOXIN [Suspect]
     Indication: CARDIAC FAILURE CONGESTIVE
     Dosage: 0.125MCG, QD, PO
     Route: 048
     Dates: start: 20060101, end: 20080501
  2. NEXIUM [Concomitant]
  3. MULTI-VITAMIN [Concomitant]
  4. POTASSIUM CHLORIDE [Concomitant]
  5. LIPITOR [Concomitant]
  6. SYNTHROID [Concomitant]
  7. AMLODIPINE [Concomitant]
  8. LASIX [Concomitant]
  9. ZOLOFT [Concomitant]
  10. CHLOROTHIAZIDE [Concomitant]
  11. MILRINONE LACTATE [Concomitant]
  12. LORTADINE [Concomitant]
  13. AMBIEN [Concomitant]
  14. SPIRONOLACTONE [Concomitant]
  15. ALTACE [Concomitant]
  16. REMERON [Concomitant]

REACTIONS (4)
  - ASTHENIA [None]
  - MALAISE [None]
  - THERAPEUTIC AGENT TOXICITY [None]
  - VOMITING [None]
